FAERS Safety Report 8815980 (Version 3)
Quarter: 2013Q1

REPORT INFORMATION
  Report Type: Report from Study
  Country: IT (occurrence: IT)
  Receive Date: 20120928
  Receipt Date: 20130121
  Transmission Date: 20140127
  Serious: Yes (Hospitalization, Other)
  Sender: FDA-Public Use
  Company Number: IT-ABBOTT-12P-083-0982769-00

PATIENT
  Age: 27 Year
  Sex: Male
  Weight: 45 kg

DRUGS (5)
  1. HUMIRA [Suspect]
     Indication: CROHN^S DISEASE
     Dosage: BASELINE
     Route: 058
     Dates: start: 20090907, end: 20090907
  2. HUMIRA [Suspect]
     Dosage: WEEK 2
     Route: 058
  3. HUMIRA [Suspect]
     Route: 058
     Dates: end: 20100520
  4. HUMIRA [Suspect]
     Route: 058
     Dates: end: 20100603
  5. AZATHIOPRINE [Concomitant]
     Indication: ROUTINE HEALTH MAINTENANCE
     Dates: start: 20020901

REACTIONS (1)
  - Colon cancer recurrent [Not Recovered/Not Resolved]
